FAERS Safety Report 7110624-9 (Version None)
Quarter: 2010Q4

REPORT INFORMATION
  Report Type: 
  Country: None (occurrence: None)
  Receive Date: 20101118
  Receipt Date: 20101104
  Transmission Date: 20110411
  Serious: Yes (Other)
  Sender: FDA-Public Use
  Company Number: JP-ROCHE-741964

PATIENT
  Sex: Male
  Weight: 3.3 kg

DRUGS (1)
  1. OSELTAMIVIR [Suspect]
     Indication: INFLUENZA
     Dosage: ORAL FORMATION(NOT OTHERWISE SPECIFIED)
     Route: 064
     Dates: start: 20091022, end: 20091026

REACTIONS (2)
  - ANAL ABSCESS [None]
  - DRUG EXPOSURE DURING PREGNANCY [None]
